FAERS Safety Report 8400433-2 (Version None)
Quarter: 2012Q2

REPORT INFORMATION
  Report Type: 
  Country: None (occurrence: None)
  Receive Date: 20120531
  Receipt Date: 20120524
  Transmission Date: 20120825
  Serious: Yes (Other)
  Sender: FDA-Public Use
  Company Number: US-ROXANE LABORATORIES, INC.-2012-RO-01309RO

PATIENT
  Age: 83 Year
  Sex: Female

DRUGS (3)
  1. HEPARIN [Suspect]
     Indication: ACUTE MYOCARDIAL INFARCTION
     Route: 042
  2. ASPIRIN [Suspect]
  3. CLOPIDOGREL [Suspect]
     Dosage: 600 MG

REACTIONS (2)
  - PULMONARY ALVEOLAR HAEMORRHAGE [None]
  - RESPIRATORY DISTRESS [None]
